FAERS Safety Report 9184365 (Version 1)
Quarter: 2013Q1

REPORT INFORMATION
  Report Type: Spontaneous
  Country: GB (occurrence: GB)
  Receive Date: 20130322
  Receipt Date: 20130322
  Transmission Date: 20140127
  Serious: Yes (Hospitalization)
  Sender: FDA-Public Use
  Company Number: GB-EISAI INC-E2090-02566-SPO-GB

PATIENT
  Age: 2 Year
  Sex: Male

DRUGS (2)
  1. ZONEGRAN [Suspect]
     Indication: PRODUCT USED FOR UNKNOWN INDICATION
     Dosage: UNKNOWN
     Route: 048
  2. ZONEGRAN [Suspect]
     Dosage: DOSE BEING TITRATED DOWN
     Route: 048

REACTIONS (2)
  - Cardiac disorder [Unknown]
  - Urinary retention [Unknown]
